FAERS Safety Report 16774865 (Version 1)
Quarter: 2019Q3

REPORT INFORMATION
  Report Type: Report from Study
  Country: DE (occurrence: DE)
  Receive Date: 20190905
  Receipt Date: 20190905
  Transmission Date: 20191005
  Serious: Yes (Hospitalization)
  Sender: FDA-Public Use
  Company Number: DE-TEVA-2019-DE-1101727

PATIENT
  Age: 60 Year
  Sex: Male
  Weight: 67 kg

DRUGS (8)
  1. CISPLATIN. [Suspect]
     Active Substance: CISPLATIN
     Indication: SQUAMOUS CELL CARCINOMA OF HEAD AND NECK
     Dosage: DAILY DOSE: 40 MG/M2 MILLIGRAM(S)/SQ. METER EVERY WEEKS
     Dates: start: 20150806, end: 20151001
  2. PRADAXA [Concomitant]
     Active Substance: DABIGATRAN ETEXILATE MESYLATE
     Indication: ATRIAL FIBRILLATION
  3. ERBITUX [Suspect]
     Active Substance: CETUXIMAB
     Indication: SQUAMOUS CELL CARCINOMA OF HEAD AND NECK
     Route: 042
     Dates: start: 20150806, end: 20151001
  4. ERBITUX [Suspect]
     Active Substance: CETUXIMAB
     Route: 042
  5. ERBITUX [Suspect]
     Active Substance: CETUXIMAB
     Route: 042
     Dates: start: 20150806
  6. ONDANSETRON [Concomitant]
     Active Substance: ONDANSETRON
     Indication: PREMEDICATION
     Dates: start: 20150806, end: 20150806
  7. INSPRA [Concomitant]
     Active Substance: EPLERENONE
     Indication: HYPERTONIA
  8. XIPAMID [Concomitant]
     Active Substance: XIPAMIDE
     Indication: HYPERTONIA

REACTIONS (4)
  - Dyspnoea [Not Recovered/Not Resolved]
  - Pneumonitis [Recovered/Resolved]
  - Hypomagnesaemia [Not Recovered/Not Resolved]
  - Hypocalcaemia [Not Recovered/Not Resolved]

NARRATIVE: CASE EVENT DATE: 20150910
